FAERS Safety Report 7343865-6 (Version None)
Quarter: 2011Q1

REPORT INFORMATION
  Report Type: 
  Country: None (occurrence: None)
  Receive Date: 20110310
  Receipt Date: 20110225
  Transmission Date: 20110831
  Serious: Yes (Hospitalization)
  Sender: FDA-Public Use
  Company Number: PHHY2011KR16255

PATIENT
  Age: 72 Year
  Sex: Female

DRUGS (4)
  1. ETHAMBUTOL HYDROCHLORIDE [Suspect]
     Indication: TUBERCULOSIS
     Dosage: UNK
  2. PYRAZINAMIDE [Suspect]
     Indication: TUBERCULOSIS
     Dosage: UNK
  3. ISONIAZID [Suspect]
     Indication: TUBERCULOSIS
     Dosage: UNK
  4. RIFAMPICIN [Suspect]
     Indication: TUBERCULOSIS
     Dosage: UNK

REACTIONS (7)
  - ALANINE AMINOTRANSFERASE INCREASED [None]
  - RASH MACULO-PAPULAR [None]
  - RASH ERYTHEMATOUS [None]
  - ANGIOEDEMA [None]
  - SKIN LESION [None]
  - ASPARTATE AMINOTRANSFERASE INCREASED [None]
  - DRUG RASH WITH EOSINOPHILIA AND SYSTEMIC SYMPTOMS [None]
